FAERS Safety Report 7769056-2 (Version None)
Quarter: 2011Q3

REPORT INFORMATION
  Report Type: 
  Country: None (occurrence: None)
  Receive Date: 20110922
  Receipt Date: 20100517
  Transmission Date: 20111222
  Serious: No
  Sender: FDA-Public Use
  Company Number: US-ASTRAZENECA-2009UW13299

PATIENT
  Age: 42 Year
  Sex: Female
  Weight: 126.1 kg

DRUGS (16)
  1. SEROQUEL [Suspect]
     Indication: SCHIZOPHRENIA
     Route: 048
     Dates: start: 20000417, end: 20040622
  2. RISPERDAL [Concomitant]
     Indication: SCHIZOPHRENIA
     Dates: start: 20010222, end: 20010426
  3. SEROQUEL [Suspect]
     Indication: SLEEP DISORDER
     Route: 048
     Dates: start: 20000417, end: 20040622
  4. RISPERDAL [Concomitant]
     Dates: start: 20040604
  5. SEROQUEL [Suspect]
     Route: 048
     Dates: start: 20020716
  6. PROLIXIN [Concomitant]
     Dates: start: 20031104, end: 20040610
  7. RISPERDAL [Concomitant]
     Dates: start: 20040608, end: 20040817
  8. GEODON [Concomitant]
     Dates: start: 20061218
  9. RISPERDAL [Concomitant]
     Dosage: 25 MG OF 2 WEEKS FOR THREE MONTHS
     Route: 030
     Dates: start: 20040608
  10. GEODON [Concomitant]
     Route: 048
     Dates: start: 20040604
  11. PROLIXIN [Concomitant]
  12. GEODON [Concomitant]
     Dates: start: 20040322, end: 20040622
  13. SEROQUEL [Suspect]
     Route: 048
     Dates: start: 20020716
  14. RISPERDAL [Concomitant]
     Dates: start: 20080303
  15. LIPITOR [Concomitant]
     Route: 048
     Dates: start: 20061218
  16. LEXAPRO [Concomitant]
     Route: 048
     Dates: start: 20040604

REACTIONS (5)
  - TYPE 2 DIABETES MELLITUS [None]
  - HYPERTENSION [None]
  - HYPERLIPIDAEMIA [None]
  - OBESITY [None]
  - BLOOD CHOLESTEROL INCREASED [None]
